APPROVED DRUG PRODUCT: DDAVP
Active Ingredient: DESMOPRESSIN ACETATE
Strength: 0.1MG
Dosage Form/Route: TABLET;ORAL
Application: N019955 | Product #001 | TE Code: AB
Applicant: FERRING PHARMACEUTICALS INC
Approved: Sep 6, 1995 | RLD: Yes | RS: No | Type: RX